FAERS Safety Report 15567655 (Version 1)
Quarter: 2018Q4

REPORT INFORMATION
  Report Type: Spontaneous
  Country: US (occurrence: US)
  Receive Date: 20181030
  Receipt Date: 20181030
  Transmission Date: 20190205
  Serious: No
  Sender: FDA-Public Use
  Company Number: US-TEVA-2018-US-968578

PATIENT
  Sex: Male

DRUGS (1)
  1. COPAXONE [Suspect]
     Active Substance: GLATIRAMER ACETATE
     Indication: MULTIPLE SCLEROSIS
     Dosage: FORM STRENGTH: UNKNOWN
     Route: 065

REACTIONS (6)
  - Gait inability [Unknown]
  - Nervous system disorder [Unknown]
  - Bradyphrenia [Unknown]
  - Frustration tolerance decreased [Unknown]
  - Dysgraphia [Unknown]
  - Confusional state [Unknown]
